FAERS Safety Report 5455540-3 (Version None)
Quarter: 2007Q3

REPORT INFORMATION
  Report Type: 
  Country: None (occurrence: None)
  Receive Date: 20070918
  Receipt Date: 20070330
  Transmission Date: 20080115
  Serious: Yes (Hospitalization)
  Sender: FDA-Public Use
  Company Number: US-ASTRAZENECA-2006UW21881

PATIENT
  Sex: Female
  Weight: 58.2 kg

DRUGS (3)
  1. SEROQUEL [Suspect]
     Indication: BIPOLAR I DISORDER
     Dosage: 100 MG
     Route: 048
     Dates: start: 20041001
  2. SEROQUEL [Suspect]
     Dosage: 200 MG
     Route: 048
     Dates: start: 20060801
  3. DEPAKOTE [Concomitant]
     Dosage: 500 MG
     Dates: start: 20050901

REACTIONS (1)
  - PANCREATITIS [None]
